FAERS Safety Report 21978734 (Version 1)
Quarter: 2023Q1

REPORT INFORMATION
  Report Type: Other
  Country: IN (occurrence: None)
  Receive Date: 20230210
  Receipt Date: 20230210
  Transmission Date: 20230418
  Serious: Yes (Death)
  Sender: FDA-Public Use
  Company Number: IN-ROCHE-3248072

PATIENT
  Age: 74 Year
  Sex: Male

DRUGS (1)
  1. TECENTRIQ [Suspect]
     Active Substance: ATEZOLIZUMAB
     Indication: Bladder cancer
     Route: 041
     Dates: start: 20221203

REACTIONS (3)
  - Death [Fatal]
  - Chest pain [Unknown]
  - Weight decreased [Unknown]

NARRATIVE: CASE EVENT DATE: 20230201
